FAERS Safety Report 17266021 (Version 2)
Quarter: 2020Q2

REPORT INFORMATION
  Report Type: Spontaneous
  Country: ES (occurrence: ES)
  Receive Date: 20200114
  Receipt Date: 20200528
  Transmission Date: 20200713
  Serious: Yes (Life-Threatening, Hospitalization)
  Sender: FDA-Public Use
  Company Number: ES-ALVOGEN-2020-ALVOGEN-102352

PATIENT
  Age: 63 Year
  Sex: Male

DRUGS (2)
  1. ALPRAZOLAM. [Suspect]
     Active Substance: ALPRAZOLAM
     Indication: CELL DEATH
     Route: 048
     Dates: start: 20180428, end: 20180428
  2. FENTANYL. [Suspect]
     Active Substance: FENTANYL
     Indication: CELL DEATH
     Dosage: 8 PARCHES DE 25 MCG (){/
     Route: 058
     Dates: start: 20180428, end: 20180428

REACTIONS (4)
  - Suicide attempt [Recovering/Resolving]
  - Cyanosis [Recovering/Resolving]
  - Loss of consciousness [Recovering/Resolving]
  - Cardiac arrest [Recovering/Resolving]

NARRATIVE: CASE EVENT DATE: 20180428
